FAERS Safety Report 18147467 (Version 1)
Quarter: 2020Q3

REPORT INFORMATION
  Report Type: Spontaneous
  Country: US (occurrence: US)
  Receive Date: 20200813
  Receipt Date: 20200813
  Transmission Date: 20201103
  Serious: No
  Sender: FDA-Public Use
  Company Number: US-TEVA-2020-US-1813238

PATIENT
  Sex: Female

DRUGS (1)
  1. POTASSIUM (ACTAVIS) (POTASSIUM CHLORIDE) [Suspect]
     Active Substance: POTASSIUM CHLORIDE
     Route: 065

REACTIONS (1)
  - Product use complaint [Unknown]
